FAERS Safety Report 17760881 (Version 12)
Quarter: 2023Q2

REPORT INFORMATION
  Report Type: Spontaneous
  Country: US (occurrence: US)
  Receive Date: 20200508
  Receipt Date: 20230616
  Transmission Date: 20230721
  Serious: Yes (Hospitalization, Other)
  Sender: FDA-Public Use
  Company Number: US-PFIZER INC-2020183183

PATIENT
  Age: 72 Year
  Sex: Female
  Weight: 102.06 kg

DRUGS (8)
  1. INLYTA [Suspect]
     Active Substance: AXITINIB
     Indication: Pancreatic neoplasm
     Dosage: 6 MG, 2X/DAY
     Route: 048
     Dates: start: 201902
  2. INLYTA [Suspect]
     Active Substance: AXITINIB
     Indication: Renal cancer
     Dosage: 4 MG, 2X/DAY
     Route: 048
  3. INLYTA [Suspect]
     Active Substance: AXITINIB
     Dosage: 6 MG
     Route: 048
  4. INLYTA [Suspect]
     Active Substance: AXITINIB
     Dosage: 3 MG, 2X/DAY
  5. INLYTA [Suspect]
     Active Substance: AXITINIB
     Dosage: 1 MG
  6. INLYTA [Suspect]
     Active Substance: AXITINIB
     Dosage: 3 MG
  7. KEYTRUDA [Concomitant]
     Active Substance: PEMBROLIZUMAB
     Dosage: UNK
  8. PREDNISONE [Concomitant]
     Active Substance: PREDNISONE
     Indication: Arthropathy
     Dosage: 1.5 MG, DAILY

REACTIONS (21)
  - Back injury [Recovering/Resolving]
  - Thoracic vertebral fracture [Recovering/Resolving]
  - Fall [Unknown]
  - Rheumatoid arthritis [Unknown]
  - Weight decreased [Unknown]
  - Irritable bowel syndrome [Not Recovered/Not Resolved]
  - Arthritis [Recovering/Resolving]
  - Arthralgia [Recovering/Resolving]
  - Pain [Unknown]
  - Diarrhoea [Unknown]
  - Bowel movement irregularity [Unknown]
  - Myalgia [Unknown]
  - COVID-19 [Unknown]
  - Fatigue [Recovering/Resolving]
  - Gait disturbance [Recovering/Resolving]
  - Stress [Unknown]
  - Arthritis [Unknown]
  - Arthropathy [Unknown]
  - Fatigue [Unknown]
  - Impaired healing [Unknown]
  - Muscular weakness [Unknown]

NARRATIVE: CASE EVENT DATE: 20190301
